FAERS Safety Report 11265033 (Version 2)
Quarter: 2015Q3

REPORT INFORMATION
  Report Type: Report from Study
  Country: BR (occurrence: BR)
  Receive Date: 20150713
  Receipt Date: 20150724
  Transmission Date: 20151125
  Serious: Yes (Other)
  Sender: FDA-Public Use
  Company Number: PHHY2015BR080234

PATIENT
  Sex: Female
  Weight: 53 kg

DRUGS (1)
  1. FORASEQ [Suspect]
     Active Substance: BUDESONIDE\FORMOTEROL FUMARATE
     Indication: ASTHMA
     Dosage: 2 DF, QD (2 CAPSULES OF EACH TREATMENT/DAY)
     Route: 055
     Dates: start: 201505

REACTIONS (1)
  - Chronic kidney disease [Recovered/Resolved]
